FAERS Safety Report 7108121-X (Version None)
Quarter: 2010Q4

REPORT INFORMATION
  Report Type: 
  Country: None (occurrence: None)
  Receive Date: 20101117
  Receipt Date: 20101108
  Transmission Date: 20110411
  Serious: Yes (Other)
  Sender: FDA-Public Use
  Company Number: DE-ACTELION-A-CH2010-40025

PATIENT
  Sex: Male

DRUGS (2)
  1. TRACLEER [Suspect]
     Dosage: 31.25 MG, BID
     Route: 048
  2. REVATIO [Suspect]

REACTIONS (1)
  - NO ADVERSE EVENT [None]
